FAERS Safety Report 19602339 (Version 1)
Quarter: 2021Q3

REPORT INFORMATION
  Report Type: Other
  Country: CN (occurrence: CN)
  Receive Date: 20210724
  Receipt Date: 20210724
  Transmission Date: 20211014
  Serious: Yes (Other)
  Sender: FDA-Public Use
  Company Number: CN-ROCHE-2870125

PATIENT
  Age: 37 Year
  Sex: Male

DRUGS (3)
  1. TEMOZOLOMIDE. [Concomitant]
     Active Substance: TEMOZOLOMIDE
     Indication: GLIOBLASTOMA
  2. VEMURAFENIB. [Suspect]
     Active Substance: VEMURAFENIB
     Indication: GLIOBLASTOMA
     Route: 065
     Dates: start: 20190601
  3. VEMURAFENIB. [Suspect]
     Active Substance: VEMURAFENIB
     Route: 065

REACTIONS (3)
  - Vomiting [Unknown]
  - Gastrointestinal disorder [Unknown]
  - Gastrointestinal carcinoma [Unknown]
